FAERS Safety Report 16148207 (Version 2)
Quarter: 2019Q2

REPORT INFORMATION
  Report Type: Report from Study
  Country: DE (occurrence: DE)
  Receive Date: 20190402
  Receipt Date: 20190429
  Transmission Date: 20190711
  Serious: Yes (Other)
  Sender: FDA-Public Use
  Company Number: DE-PFIZER INC-2019139509

PATIENT
  Age: 47 Year
  Sex: Female

DRUGS (4)
  1. IBUPROFEN. [Suspect]
     Active Substance: IBUPROFEN
     Dosage: UNK
     Dates: start: 201812
  2. IBUPROFEN. [Suspect]
     Active Substance: IBUPROFEN
     Dosage: 600 (UNSPECIFIED UNITS)
  3. REBIF [Suspect]
     Active Substance: INTERFERON BETA-1A
     Indication: MULTIPLE SCLEROSIS
     Dosage: 44 UG,  (TIME INTERVAL: 0.33 WK)
     Route: 058
     Dates: start: 20131105
  4. IBUPROFEN. [Suspect]
     Active Substance: IBUPROFEN
     Indication: MYALGIA
     Dosage: 800 (UNSPECIFIED UNITS), 1X/DAY
     Route: 048

REACTIONS (7)
  - Pain in extremity [Recovered/Resolved]
  - Injection site pruritus [Unknown]
  - Depression [Recovered/Resolved]
  - Injection site swelling [Unknown]
  - Renal failure [Recovering/Resolving]
  - Injection site erythema [Unknown]
  - Myalgia [Recovered/Resolved]

NARRATIVE: CASE EVENT DATE: 20181211
